FAERS Safety Report 8837201 (Version 1)
Quarter: 2012Q4

REPORT INFORMATION
  Report Type: 
  Country: PL (occurrence: PL)
  Receive Date: 20121012
  Receipt Date: 20121012
  Transmission Date: 20130627
  Serious: Yes (Death, Other)
  Sender: FDA-Public Use
  Company Number: PHHY2012PL090135

PATIENT
  Age: 16 Year
  Sex: Male

DRUGS (5)
  1. CICLOSPORIN [Suspect]
  2. IMATINIB [Suspect]
     Indication: HYPEREOSINOPHILIC SYNDROME
  3. VEPESIDE [Suspect]
  4. CYTARABINE [Suspect]
  5. VINCRISTINE [Suspect]

REACTIONS (2)
  - Death [Fatal]
  - No therapeutic response [Unknown]
